FAERS Safety Report 6327610-9 (Version None)
Quarter: 2009Q3

REPORT INFORMATION
  Report Type: 
  Country: None (occurrence: None)
  Receive Date: 20090821
  Receipt Date: 20090810
  Transmission Date: 20100115
  Serious: Yes (Life-Threatening, Hospitalization)
  Sender: FDA-Public Use
  Company Number: ADR11702009

PATIENT
  Age: 86 Year
  Sex: Female

DRUGS (10)
  1. METFORMIN HYDROCHLORIDE [Suspect]
     Dosage: 1000 MG, DAILY; ORAL
     Route: 048
  2. BENDROFLUAZIDE [Concomitant]
  3. ENALAPRIL MALEATE [Concomitant]
  4. ASPIRIN [Concomitant]
  5. CO-PROXAMOL (PARACETAMOL/DEXTROPROPOXYENE) [Concomitant]
  6. SIMVASTATIN [Concomitant]
  7. QUININE [Concomitant]
  8. PARACETAMOL [Concomitant]
  9. TRAMADOL HCL [Concomitant]
  10. FYBOGEL (PLANTAGO OVATA) [Concomitant]

REACTIONS (4)
  - CONDITION AGGRAVATED [None]
  - DIARRHOEA [None]
  - RENAL FAILURE [None]
  - VOMITING [None]
